FAERS Safety Report 8258352-0 (Version None)
Quarter: 2012Q2

REPORT INFORMATION
  Report Type: 
  Country: None (occurrence: None)
  Receive Date: 20120403
  Receipt Date: 20120403
  Transmission Date: 20120825
  Serious: Yes (Other)
  Sender: FDA-Public Use
  Company Number: None

PATIENT
  Age: 92 Year
  Sex: Female
  Weight: 48.5 kg

DRUGS (1)
  1. IMEXON [Suspect]

REACTIONS (1)
  - BLOOD URIC ACID INCREASED [None]
